FAERS Safety Report 15927706 (Version 2)
Quarter: 2019Q1

REPORT INFORMATION
  Report Type: Spontaneous
  Country: US (occurrence: US)
  Receive Date: 20190205
  Receipt Date: 20190219
  Transmission Date: 20190417
  Serious: No
  Sender: FDA-Public Use
  Company Number: US-ALLERGAN-1858179US

PATIENT
  Age: 53 Year
  Sex: Female

DRUGS (2)
  1. BOTOX COSMETIC [Suspect]
     Active Substance: ONABOTULINUMTOXINA
     Indication: SKIN WRINKLING
  2. BOTOX COSMETIC [Suspect]
     Active Substance: ONABOTULINUMTOXINA
     Indication: SKIN WRINKLING
     Dosage: ACTUAL: 25 UNITS TO GLABELLA AND 7 UNITS TO FOREHEAD
     Route: 030
     Dates: start: 20181210, end: 20181210

REACTIONS (6)
  - Off label use [Unknown]
  - Swelling face [Recovered/Resolved]
  - Skin tightness [Not Recovered/Not Resolved]
  - Eye swelling [Recovered/Resolved]
  - Swelling of eyelid [Unknown]
  - Brow ptosis [Not Recovered/Not Resolved]

NARRATIVE: CASE EVENT DATE: 201812
